FAERS Safety Report 7021132-8 (Version None)
Quarter: 2010Q3

REPORT INFORMATION
  Report Type: 
  Country: None (occurrence: None)
  Receive Date: 20100929
  Receipt Date: 20100921
  Transmission Date: 20110219
  Serious: Yes (Other)
  Sender: FDA-Public Use
  Company Number: US-PFIZER INC-2010086164

PATIENT
  Sex: Female
  Weight: 90.703 kg

DRUGS (2)
  1. CHANTIX [Suspect]
     Indication: SMOKING CESSATION THERAPY
     Dosage: 0.5 MG, DAILY
     Route: 048
     Dates: start: 20100706, end: 20100708
  2. CILOSTAZOL [Concomitant]
     Indication: PERIPHERAL ARTERIAL OCCLUSIVE DISEASE
     Dosage: 100 MG, 2X/DAY
     Dates: start: 20020101

REACTIONS (7)
  - FEELING ABNORMAL [None]
  - HYPERSENSITIVITY [None]
  - HYPOKINESIA [None]
  - LOCAL SWELLING [None]
  - MOVEMENT DISORDER [None]
  - SWELLING [None]
  - SWELLING FACE [None]
